FAERS Safety Report 8137481-6 (Version None)
Quarter: 2012Q1

REPORT INFORMATION
  Report Type: 
  Country: None (occurrence: None)
  Receive Date: 20120215
  Receipt Date: 20120201
  Transmission Date: 20120608
  Serious: Yes (Life-Threatening, Hospitalization)
  Sender: FDA-Public Use
  Company Number: GB-MYLANLABS-2012S1002333

PATIENT
  Age: 56 Year
  Sex: Female

DRUGS (3)
  1. CLOBAZAM [Suspect]
     Indication: TEMPORAL LOBE EPILEPSY
     Route: 048
  2. LAMOTRIGINE [Suspect]
     Indication: TEMPORAL LOBE EPILEPSY
     Route: 048
  3. VALPROATE SODIUM [Suspect]
     Indication: TEMPORAL LOBE EPILEPSY
     Route: 048

REACTIONS (4)
  - NEUTROPENIC SEPSIS [None]
  - BONE MARROW FAILURE [None]
  - PERIPHERAL SENSORIMOTOR NEUROPATHY [None]
  - URINARY TRACT INFECTION [None]
